FAERS Safety Report 6628277-2 (Version None)
Quarter: 2010Q1

REPORT INFORMATION
  Report Type: 
  Country: None (occurrence: None)
  Receive Date: 20100311
  Receipt Date: 20100304
  Transmission Date: 20100710
  Serious: Yes (Other)
  Sender: FDA-Public Use
  Company Number: BE-PERRIGO-10BE007599

PATIENT
  Age: 38 Year
  Sex: Female

DRUGS (7)
  1. IBUPROFEN 200 MG 604 [Suspect]
     Indication: INFLUENZA LIKE ILLNESS
     Dosage: 600 MG AFTER EACH INTERFERON BETA-1A INJECTION
     Route: 048
     Dates: start: 20060601, end: 20060801
  2. IBUPROFEN 200 MG 604 [Suspect]
     Indication: INFLUENZA
     Dosage: 400 MG, BID
     Route: 048
     Dates: start: 20070301, end: 20070301
  3. INTERFERON BETA-1A [Concomitant]
     Indication: MULTIPLE SCLEROSIS
     Dosage: WEEKLY INJECTIONS
     Route: 030
     Dates: start: 20060601, end: 20060801
  4. INTERFERON BETA-1A [Concomitant]
     Dosage: WEEKLY INJECTIONS
     Route: 030
     Dates: start: 20070501
  5. GLATIRAMER ACETATE [Concomitant]
     Indication: MULTIPLE SCLEROSIS
     Dosage: UNK
     Route: 030
     Dates: start: 20061001, end: 20070301
  6. ALPRAZOLAM [Concomitant]
     Indication: ANXIETY DISORDER
     Dosage: 0.5 MG, UNK
     Route: 048
  7. PARACETAMOL [Concomitant]
     Indication: INFLUENZA LIKE ILLNESS
     Dosage: 500 MG, AFTER EACH INJECTION
     Route: 048
     Dates: start: 20070501

REACTIONS (4)
  - ASTHENIA [None]
  - HEPATIC FAILURE [None]
  - JAUNDICE [None]
  - PRURITUS [None]
